FAERS Safety Report 9613917 (Version 1)
Quarter: 2013Q4

REPORT INFORMATION
  Report Type: Spontaneous
  Country: GB (occurrence: GB)
  Receive Date: 20131010
  Receipt Date: 20131010
  Transmission Date: 20140711
  Serious: Yes (Death, Hospitalization, Other)
  Sender: FDA-Public Use
  Company Number: GB-MYLANLABS-2013S1021964

PATIENT
  Age: 53 Year
  Sex: Male

DRUGS (8)
  1. VENLAFAXINE [Suspect]
     Indication: PRODUCT USED FOR UNKNOWN INDICATION
  2. SEROQUEL [Suspect]
     Indication: BIPOLAR DISORDER
     Dates: start: 2010, end: 201203
  3. SEROQUEL [Suspect]
     Indication: BIPOLAR DISORDER
     Dates: start: 2012
  4. DIAZEPAM [Concomitant]
     Indication: PRODUCT USED FOR UNKNOWN INDICATION
  5. LAMOTRIGINE [Concomitant]
     Indication: PRODUCT USED FOR UNKNOWN INDICATION
  6. LITHIUM [Concomitant]
     Indication: PRODUCT USED FOR UNKNOWN INDICATION
  7. OMEPRAZOLE [Concomitant]
     Indication: PRODUCT USED FOR UNKNOWN INDICATION
  8. PREGABALIN [Concomitant]
     Indication: PRODUCT USED FOR UNKNOWN INDICATION

REACTIONS (13)
  - Overdose [Fatal]
  - Basal cell carcinoma [Recovered/Resolved]
  - Contusion [Unknown]
  - Disturbance in attention [Unknown]
  - Condition aggravated [Unknown]
  - Disinhibition [Unknown]
  - Drug withdrawal syndrome [Unknown]
  - Agitation [Unknown]
  - Hallucination [Unknown]
  - Injury [Unknown]
  - Irritability [Unknown]
  - Paranoia [Unknown]
  - Malaise [Unknown]
